FAERS Safety Report 9068433 (Version 1)
Quarter: 2013Q1

REPORT INFORMATION
  Report Type: Spontaneous
  Country: NO (occurrence: NO)
  Receive Date: 20130206
  Receipt Date: 20130206
  Transmission Date: 20140127
  Serious: Yes (Other)
  Sender: FDA-Public Use
  Company Number: NO-ABBOTT-13P-122-1042026-00

PATIENT
  Sex: Male

DRUGS (8)
  1. CLARITHROMYCIN [Suspect]
     Indication: BORRELIA INFECTION
     Dosage: 500 MG X 2 FOR 2 WEEKS
     Route: 048
  2. AZITHROMYCIN [Suspect]
     Indication: BORRELIA INFECTION
     Route: 048
  3. AZITHROMYCIN [Suspect]
  4. METRONIDAZOLE [Suspect]
     Indication: BORRELIA INFECTION
  5. PLAQUENIL [Suspect]
     Indication: BORRELIA INFECTION
     Dosage: 200 MG X 2 FOR 6 WEEKS
     Route: 048
  6. SELEXID [Concomitant]
     Indication: PYELONEPHRITIS
  7. AMOXICILLIN [Concomitant]
     Indication: BORRELIA INFECTION
  8. COPAXONE [Concomitant]
     Indication: MULTIPLE SCLEROSIS
     Route: 058

REACTIONS (2)
  - Clostridium difficile colitis [Unknown]
  - Off label use [Unknown]
